FAERS Safety Report 4576946-0 (Version None)
Quarter: 2005Q1

REPORT INFORMATION
  Report Type: 
  Country: None (occurrence: None)
  Receive Date: 20050208
  Receipt Date: 20050126
  Transmission Date: 20050727
  Serious: Yes (Hospitalization, Other)
  Sender: FDA-Public Use
  Company Number: 2005003702

PATIENT
  Age: 64 Year
  Sex: Female
  Weight: 83.9154 kg

DRUGS (6)
  1. CELEBREX [Suspect]
     Indication: BACK PAIN
     Dosage: 200 MG (200 MG, 1 IN 1D), ORAL
     Route: 048
     Dates: start: 20010201
  2. CELEBREX [Suspect]
     Indication: OSTEOARTHRITIS
     Dosage: 200 MG (200 MG, 1 IN 1D), ORAL
     Route: 048
     Dates: start: 20010201
  3. CELEBREX [Suspect]
     Indication: PAIN IN EXTREMITY
     Dosage: 200 MG (200 MG, 1 IN 1D), ORAL
     Route: 048
     Dates: start: 20010201
  4. ATENOLOL / HYDROCHLOROTHIAZIDE (ATENOLOL, HYDROCHLOROTHIAZIDE) [Concomitant]
  5. LISINOPRIL [Concomitant]
  6. HYDROCHLOROTHIAZIDE [Concomitant]

REACTIONS (2)
  - CHEST PAIN [None]
  - RENAL CELL CARCINOMA STAGE UNSPECIFIED [None]
